FAERS Safety Report 24223798 (Version 3)
Quarter: 2024Q4

REPORT INFORMATION
  Report Type: Spontaneous
  Country: US (occurrence: US)
  Receive Date: 20240819
  Receipt Date: 20241021
  Transmission Date: 20250114
  Serious: Yes (Other)
  Sender: ALEXION PHARMACEUTICALS
  Company Number: 2024A183964

PATIENT
  Age: 55 Year

DRUGS (3)
  1. TEZSPIRE [Suspect]
     Active Substance: TEZEPELUMAB-EKKO
     Dosage: 210 MILLIGRAM, UNK, FREQUENCY: UNK
  2. TEZSPIRE [Suspect]
     Active Substance: TEZEPELUMAB-EKKO
  3. DEVICE [Suspect]
     Active Substance: DEVICE

REACTIONS (5)
  - Diabetes mellitus [Unknown]
  - Arthropod bite [Unknown]
  - Device leakage [Unknown]
  - Immune system disorder [Unknown]
  - Inappropriate schedule of product administration [Unknown]
